FAERS Safety Report 9417589 (Version 1)
Quarter: 2013Q3

REPORT INFORMATION
  Report Type: Spontaneous
  Country: US (occurrence: US)
  Receive Date: 20130724
  Receipt Date: 20130724
  Transmission Date: 20140515
  Serious: No
  Sender: FDA-Public Use
  Company Number: US-BRISTOL-MYERS SQUIBB COMPANY-19002096

PATIENT
  Age: 80 Year
  Sex: Female
  Weight: 81.63 kg

DRUGS (5)
  1. ELIQUIS [Suspect]
     Indication: ATRIAL FIBRILLATION
     Dosage: AGAIN ON 01MAY2013
     Route: 048
     Dates: start: 20130501
  2. COREG [Concomitant]
  3. NIACIN [Concomitant]
  4. KLOR-CON [Concomitant]
  5. FUROSEMIDE [Concomitant]

REACTIONS (1)
  - Influenza [Recovered/Resolved]
